FAERS Safety Report 9750008 (Version 2)
Quarter: 2013Q4

REPORT INFORMATION
  Report Type: Spontaneous
  Country: DE (occurrence: DE)
  Receive Date: 20131212
  Receipt Date: 20131212
  Transmission Date: 20140711
  Serious: No
  Sender: FDA-Public Use
  Company Number: DE-GILEAD-DE-CVT-090553

PATIENT
  Age: 79 Year
  Sex: Male

DRUGS (7)
  1. RANEXA [Suspect]
     Indication: MYOCARDIAL ISCHAEMIA
     Route: 048
     Dates: start: 20090610, end: 200908
  2. PLAVIX [Concomitant]
  3. INEGY [Concomitant]
  4. TOREM                              /01036501/ [Concomitant]
  5. GLIMEPIRIDE [Concomitant]
  6. INSULIN                            /00030501/ [Concomitant]
  7. BISOPROLOL                         /00802601/ [Concomitant]

REACTIONS (2)
  - Dizziness [Recovered/Resolved]
  - Nausea [Recovered/Resolved]
